FAERS Safety Report 17143115 (Version 6)
Quarter: 2021Q3

REPORT INFORMATION
  Report Type: Report from Study
  Country: US (occurrence: US)
  Receive Date: 20191212
  Receipt Date: 20210914
  Transmission Date: 20211014
  Serious: Yes (Hospitalization, Other)
  Sender: FDA-Public Use
  Company Number: US-SHIRE-US201943135

PATIENT
  Age: 40 Year
  Sex: Female
  Weight: 88.89 kg

DRUGS (13)
  1. PARATHYROID HORMONE [Suspect]
     Active Substance: PARATHYROID HORMONE
     Dosage: 100 MICROGRAM
     Route: 065
     Dates: start: 20191209
  2. PARATHYROID HORMONE [Suspect]
     Active Substance: PARATHYROID HORMONE
     Dosage: 100 MICROGRAM, 1X/DAY: QD
     Route: 058
     Dates: start: 20190828, end: 20191231
  3. PARATHYROID HORMONE [Suspect]
     Active Substance: PARATHYROID HORMONE
     Dosage: 100 MICROGRAM, 1X/DAY: QD
     Route: 058
     Dates: start: 20190828, end: 20191231
  4. PARATHYROID HORMONE [Suspect]
     Active Substance: PARATHYROID HORMONE
     Dosage: 50 MICROGRAM (ALT DOSING: 50MCG 2 CARTRIDGES)
     Route: 058
     Dates: start: 20180326
  5. COVID?19 VACCINE NOS. [Suspect]
     Active Substance: COVID-19 VACCINE NOS
     Indication: PRODUCT USED FOR UNKNOWN INDICATION
     Route: 065
  6. PARATHYROID HORMONE [Suspect]
     Active Substance: PARATHYROID HORMONE
     Indication: HYPOPARATHYROIDISM
     Dosage: 100 MICROGRAM
     Route: 065
  7. PARATHYROID HORMONE [Suspect]
     Active Substance: PARATHYROID HORMONE
     Dosage: 50 MICROGRAM (ALT DOSING: 50MCG 2 CARTRIDGES)
     Route: 058
     Dates: start: 20180326
  8. PARATHYROID HORMONE [Suspect]
     Active Substance: PARATHYROID HORMONE
     Indication: HYPOPARATHYROIDISM
     Dosage: 100 MICROGRAM
     Route: 065
  9. PARATHYROID HORMONE [Suspect]
     Active Substance: PARATHYROID HORMONE
     Dosage: 100 MICROGRAM
     Route: 065
     Dates: start: 20191209
  10. PARATHYROID HORMONE [Suspect]
     Active Substance: PARATHYROID HORMONE
     Dosage: 100 MICROGRAM
     Route: 065
     Dates: start: 20191209
  11. PARATHYROID HORMONE [Suspect]
     Active Substance: PARATHYROID HORMONE
     Indication: HYPOPARATHYROIDISM
     Dosage: 100 MICROGRAM
     Route: 065
  12. PARATHYROID HORMONE [Suspect]
     Active Substance: PARATHYROID HORMONE
     Dosage: 100 MICROGRAM, 1X/DAY: QD
     Route: 058
     Dates: start: 20190828, end: 20191231
  13. PARATHYROID HORMONE [Suspect]
     Active Substance: PARATHYROID HORMONE
     Dosage: 50 MICROGRAM (ALT DOSING: 50MCG 2 CARTRIDGES)
     Route: 058
     Dates: start: 20180326

REACTIONS (14)
  - COVID-19 immunisation [Recovered/Resolved]
  - Product distribution issue [Unknown]
  - Device malfunction [Unknown]
  - Fatigue [Recovered/Resolved]
  - Product administration error [Recovered/Resolved]
  - Blood calcium decreased [Recovering/Resolving]
  - Product dose omission issue [Unknown]
  - Malaise [Recovered/Resolved]
  - Chills [Recovered/Resolved]
  - Pyrexia [Recovered/Resolved]
  - Lethargy [Recovered/Resolved]
  - Paraesthesia [Recovering/Resolving]
  - Headache [Recovered/Resolved]
  - Product reconstitution quality issue [Unknown]

NARRATIVE: CASE EVENT DATE: 20191209
